FAERS Safety Report 20137052 (Version 2)
Quarter: 2022Q1

REPORT INFORMATION
  Report Type: Report from Study
  Country: FR (occurrence: FR)
  Receive Date: 20211201
  Receipt Date: 20220126
  Transmission Date: 20220423
  Serious: Yes (Death)
  Sender: FDA-Public Use
  Company Number: FR-PFIZER INC-202101678528

PATIENT
  Age: 89 Year
  Sex: Female
  Weight: 58 kg

DRUGS (5)
  1. IBRANCE [Suspect]
     Active Substance: PALBOCICLIB
     Dosage: UNK
  2. BROMAZEPAM [Concomitant]
     Active Substance: BROMAZEPAM
  3. LERCANIDIPINE [Concomitant]
     Active Substance: LERCANIDIPINE
  4. CANDESARTAN [Concomitant]
     Active Substance: CANDESARTAN
  5. RISPERDAL [Concomitant]
     Active Substance: RISPERIDONE

REACTIONS (1)
  - Death [Fatal]

NARRATIVE: CASE EVENT DATE: 20210603
